FAERS Safety Report 6073769-0 (Version None)
Quarter: 2009Q1

REPORT INFORMATION
  Report Type: 
  Country: None (occurrence: None)
  Receive Date: 20090209
  Receipt Date: 20090209
  Transmission Date: 20090719
  Serious: Yes (Death)
  Sender: FDA-Public Use
  Company Number: None

PATIENT
  Age: 53 Year
  Sex: Male
  Weight: 34 kg

DRUGS (6)
  1. LAMIVUDINE AND STAVUDINE [Suspect]
     Indication: HIV INFECTION
     Dosage: 300MG/60MG QD ORAL
     Route: 048
     Dates: start: 20080512, end: 20081117
  2. EFAVIRENZ [Suspect]
     Indication: HIV INFECTION
     Dosage: 600MG QD ORAL
     Route: 048
     Dates: start: 20080512, end: 20081227
  3. LAMIVUDINE [Suspect]
     Indication: HIV INFECTION
     Dosage: 300MG QD ORAL
     Route: 048
     Dates: start: 20081117, end: 20081227
  4. COTRIMOXAZOLE [Concomitant]
  5. FLUCONAZOLE [Concomitant]
  6. ZIDOVUDINE [Concomitant]

REACTIONS (9)
  - ALANINE AMINOTRANSFERASE INCREASED [None]
  - ASPARTATE AMINOTRANSFERASE INCREASED [None]
  - BLOOD SODIUM DECREASED [None]
  - GENERAL PHYSICAL HEALTH DETERIORATION [None]
  - HAEMOGLOBIN DECREASED [None]
  - LACTIC ACIDOSIS [None]
  - NEUROPATHY PERIPHERAL [None]
  - PLATELET COUNT DECREASED [None]
  - WHITE BLOOD CELL COUNT DECREASED [None]
